FAERS Safety Report 6663352-8 (Version None)
Quarter: 2010Q1

REPORT INFORMATION
  Report Type: 
  Country: None (occurrence: None)
  Receive Date: 20100331
  Receipt Date: 20100331
  Transmission Date: 20100710
  Serious: No
  Sender: FDA-Public Use
  Company Number: None

PATIENT
  Age: 57 Year
  Sex: Female
  Weight: 70.3075 kg

DRUGS (1)
  1. ARMOUR THYROID 1 GRAIN OR 60 MG FOREST [Suspect]
     Indication: HYPOTHYROIDISM
     Dosage: 60 MG 1X PER DAY PO
     Route: 048
     Dates: start: 20020101, end: 20100311

REACTIONS (1)
  - NO ADVERSE EVENT [None]
